FAERS Safety Report 4980200-2 (Version None)
Quarter: 2006Q2

REPORT INFORMATION
  Report Type: 
  Country: None (occurrence: None)
  Receive Date: 20060424
  Receipt Date: 20060310
  Transmission Date: 20061013
  Serious: Yes (Hospitalization)
  Sender: FDA-Public Use
  Company Number: US-NOVOPROD-251501

PATIENT
  Age: 64 Year
  Sex: Female
  Weight: 102 kg

DRUGS (8)
  1. NOVOLIN N [Suspect]
     Indication: INSULIN-REQUIRING TYPE II DIABETES MELLITUS
     Dosage: 40 IU, BID
     Route: 058
     Dates: start: 20050801, end: 20060303
  2. NOVOLIN N [Suspect]
     Dosage: 90 IU, QD
     Route: 058
     Dates: start: 20060303
  3. PRANOLOL [Concomitant]
     Indication: URINE ABNORMALITY
     Dosage: 10 MG, QD
     Route: 048
  4. PREVACID [Concomitant]
     Indication: GASTRIC DISORDER
     Dosage: 30 MG, QD
     Route: 048
  5. GABAPENTIN [Concomitant]
     Indication: PAIN IN EXTREMITY
     Dosage: 300 MG, TID
     Route: 048
  6. FUROSEMIDE [Concomitant]
     Indication: FLUID RETENTION
     Dosage: 20 MG, QD
     Route: 048
  7. ENALAPRIL MALEATE [Concomitant]
     Indication: HYPERTENSION
     Dosage: 10 MG, QD
     Route: 048
  8. SPIRONOLACTONE [Concomitant]
     Indication: FLUID RETENTION
     Dosage: 100 MG, QD
     Route: 048

REACTIONS (2)
  - ABSCESS LIMB [None]
  - BLOOD GLUCOSE INCREASED [None]
